FAERS Safety Report 19434255 (Version 1)
Quarter: 2021Q2

REPORT INFORMATION
  Report Type: Spontaneous
  Country: US (occurrence: US)
  Receive Date: 20210617
  Receipt Date: 20210617
  Transmission Date: 20210717
  Serious: No
  Sender: FDA-Public Use
  Company Number: US-ROCHE-2612678

PATIENT
  Age: 68 Year
  Sex: Female
  Weight: 65.01 kg

DRUGS (22)
  1. COZAAR [Concomitant]
     Active Substance: LOSARTAN POTASSIUM
     Dosage: (LOSARTAN POTASSIUM)?TAKE 1 TABLET TWICE DAILY
     Route: 048
  2. PREMARIN [Concomitant]
     Active Substance: ESTROGENS, CONJUGATED
     Dosage: TAKE 1 TABLET DAILY
     Route: 048
     Dates: start: 20070118
  3. COREG CR [Concomitant]
     Active Substance: CARVEDILOL PHOSPHATE
     Dosage: EXTENDED RELEASE 24 HOUR (CARVEDILOL PHOSPHATE ER)?TAKE 1 CAPSULE EVERY MORNING WITH FOOD
     Route: 048
  4. CYCLOBENZAPRINE HCL [Concomitant]
     Active Substance: CYCLOBENZAPRINE HYDROCHLORIDE
     Dosage: TAKE 1 TABLET 3 TIMES DAILY AS NEEDED
     Route: 048
  5. GABAPENTIN. [Concomitant]
     Active Substance: GABAPENTIN
     Dosage: TAKE 1 CAPSULE 3 TIMES DAILY
     Route: 048
  6. PRILOSEC [Concomitant]
     Active Substance: OMEPRAZOLE MAGNESIUM
     Dosage: CPDR (OMEPRAZOLE)?TAKE 1 CAPSULE DAILY
  7. ACTEMRA [Suspect]
     Active Substance: TOCILIZUMAB
     Indication: GIANT CELL ARTERITIS
     Route: 058
     Dates: start: 20200317, end: 202005
  8. FLONASE [Concomitant]
     Active Substance: FLUTICASONE PROPIONATE
     Dosage: 50 MCG/ACT SUSP (FLUTICASONE PROPIONATE)?USE 1 TO 2 SPRAYS IN EACH NOSTRIL ONCE DAILY
  9. HYDROCHLOROTHIAZIDE. [Concomitant]
     Active Substance: HYDROCHLOROTHIAZIDE
     Dosage: TAKE 1 TABLET DAILY
     Route: 048
  10. CLOTRIMAZOLE. [Concomitant]
     Active Substance: CLOTRIMAZOLE
     Indication: GIANT CELL ARTERITIS
     Dosage: CLOTRIMAZOLE?BETAMETHASONE 1?0.05% EXTERNAL CREAM ?APPLY TO THE CORNERS OF HER MOUTH TWICE A DAY
     Dates: start: 20200422
  11. ADVAIR DISKUS [Concomitant]
     Active Substance: FLUTICASONE PROPIONATE\SALMETEROL XINAFOATE
     Dosage: 100?50 MCG/DOSE INHALATION AEROSOL POWDER BREATH ACTIVATED (FLUTICASONE?SALMETEROL)?INHALE 1 PUFF DA
  12. BENTYL [Concomitant]
     Active Substance: DICYCLOMINE HYDROCHLORIDE
     Dosage: (DICYCLOMINE HCL)?TAKE 1 CAPSULE EVERY 8 HOURS AS NEEDED FOR (STOMACH PAIN/CRAMPING)
  13. FUROSEMIDE. [Concomitant]
     Active Substance: FUROSEMIDE
     Dosage: TAKE 1 TABLET DAILY AS NEEDED FOR SWELLING OR SHORTNESS OF BREATH
     Route: 048
  14. NEURONTIN [Concomitant]
     Active Substance: GABAPENTIN
     Dosage: (GABAPENTIN)?TAKE TABLET TWICE DAILY
     Route: 048
     Dates: start: 20070118
  15. ACTEMRA [Suspect]
     Active Substance: TOCILIZUMAB
     Indication: GIANT CELL ARTERITIS
     Dosage: WEEKLY
     Route: 058
     Dates: start: 20200302, end: 20200518
  16. CARBAMIDE PEROXIDE [Concomitant]
     Active Substance: CARBAMIDE PEROXIDE
     Dosage: 6.5 % SOLUTION?USE AS DIRECTED
  17. MONTELUKAST SODIUM. [Concomitant]
     Active Substance: MONTELUKAST SODIUM
     Dosage: TAKE 1 TABLET DAILY
     Route: 048
  18. IBUPROFEN. [Concomitant]
     Active Substance: IBUPROFEN
     Indication: GIANT CELL ARTERITIS
     Dosage: TAKE 1 TABLET TWICE A DAY WITH FOOD WHEN NECESSARY PAIN
     Route: 048
     Dates: start: 20200422
  19. PREDNISONE. [Concomitant]
     Active Substance: PREDNISONE
     Indication: GIANT CELL ARTERITIS
     Dosage: TAKE 2 TABLETS EVERY MORNING WITH FOOD
     Route: 048
     Dates: start: 20191231
  20. ALBUTEROL SULFATE HFA [Concomitant]
     Active Substance: ALBUTEROL SULFATE
     Dosage: 108 MCG/ACT AERS (ALBUTEROL SULFATE HFA)?INHALE 2 PUFFS EVERY 4 TIMES DAILY
  21. MECLIZINE HCL [Concomitant]
     Active Substance: MECLIZINE HYDROCHLORIDE
     Dosage: TAKE 1 TABLET 3 TIMES DAILY AS NEEDED
     Route: 048
  22. AMITRIPTYLINE HCL [Concomitant]
     Active Substance: AMITRIPTYLINE
     Dosage: TAKE 1 TABLET AT BEDTIME
     Route: 048

REACTIONS (4)
  - Abdominal pain [Unknown]
  - Alopecia [Unknown]
  - Oedema peripheral [Not Recovered/Not Resolved]
  - Pain in jaw [Unknown]

NARRATIVE: CASE EVENT DATE: 20200511
